FAERS Safety Report 25231435 (Version 1)
Quarter: 2025Q2

REPORT INFORMATION
  Report Type: Report from Study
  Country: TH (occurrence: TH)
  Receive Date: 20250423
  Receipt Date: 20250423
  Transmission Date: 20250716
  Serious: Yes (Death, Hospitalization)
  Sender: DAIICHI
  Company Number: TH-DSJP-DSJ-2024-144436

PATIENT
  Sex: Female
  Weight: 47.2 kg

DRUGS (2)
  1. ENHERTU [Suspect]
     Active Substance: FAM-TRASTUZUMAB DERUXTECAN-NXKI
     Indication: HER2 low breast cancer
     Route: 042
     Dates: start: 20240816
  2. ENHERTU [Suspect]
     Active Substance: FAM-TRASTUZUMAB DERUXTECAN-NXKI
     Route: 042
     Dates: start: 20241110

REACTIONS (9)
  - Death [Fatal]
  - Condition aggravated [Unknown]
  - Haematemesis [Unknown]
  - Upper gastrointestinal haemorrhage [Unknown]
  - Weight increased [Unknown]
  - Tumour marker increased [Unknown]
  - Weight decreased [Unknown]
  - Fatigue [Unknown]
  - Increased dose administered [Unknown]

NARRATIVE: CASE EVENT DATE: 20240101
